FAERS Safety Report 4654231-6 (Version None)
Quarter: 2005Q2

REPORT INFORMATION
  Report Type: 
  Country: None (occurrence: None)
  Receive Date: 20050404
  Receipt Date: 20050126
  Transmission Date: 20051028
  Serious: No
  Sender: FDA-Public Use
  Company Number: USA041285981

PATIENT
  Age: 53 Year
  Sex: Female

DRUGS (6)
  1. CYMBALTA [Suspect]
     Indication: OBSESSIVE-COMPULSIVE DISORDER
     Dosage: 60 MG AT BEDTIME
     Dates: start: 20041208
  2. LEXAPRO [Concomitant]
  3. KLONOPIN [Concomitant]
  4. NEXIUM [Concomitant]
  5. CLIMARA [Concomitant]
  6. FLONASE [Concomitant]

REACTIONS (18)
  - ANORGASMIA [None]
  - ANXIETY [None]
  - CONSTIPATION [None]
  - DEPRESSION [None]
  - DRUG INTOLERANCE [None]
  - DRY MOUTH [None]
  - DYSPEPSIA [None]
  - EYE DISORDER [None]
  - FEELING ABNORMAL [None]
  - HOT FLUSH [None]
  - LIBIDO DECREASED [None]
  - NAUSEA [None]
  - NERVOUSNESS [None]
  - SALIVARY HYPERSECRETION [None]
  - SOMNOLENCE [None]
  - TENSION [None]
  - TOOTH REPAIR [None]
  - WEIGHT INCREASED [None]
